FAERS Safety Report 14835267 (Version 3)
Quarter: 2018Q3

REPORT INFORMATION
  Report Type: Report from Study
  Country: BR (occurrence: BR)
  Receive Date: 20180502
  Receipt Date: 20180719
  Transmission Date: 20181010
  Serious: Yes (Other)
  Sender: FDA-Public Use
  Company Number: PHHY2017BR191378

PATIENT
  Age: 41 Year
  Sex: Male
  Weight: 93 kg

DRUGS (3)
  1. COSENTYX [Suspect]
     Active Substance: SECUKINUMAB
     Indication: PSORIASIS
     Dosage: 300 MG (2 INJECTABLE PENS OF 150 MG), QMO
     Route: 058
     Dates: start: 20170916
  2. COSENTYX [Suspect]
     Active Substance: SECUKINUMAB
     Indication: PSORIATIC ARTHROPATHY
     Dosage: 2 DF, QMO
     Route: 058
  3. COSENTYX [Suspect]
     Active Substance: SECUKINUMAB
     Dosage: 300 MG, QMO
     Route: 058
     Dates: start: 20180216, end: 20180516

REACTIONS (8)
  - Infection [Unknown]
  - Psoriasis [Not Recovered/Not Resolved]
  - Pharyngeal disorder [Unknown]
  - Tuberculosis [Unknown]
  - Oropharyngeal pain [Recovering/Resolving]
  - Cough [Recovered/Resolved]
  - Secretion discharge [Recovered/Resolved]
  - Influenza [Unknown]

NARRATIVE: CASE EVENT DATE: 201805
